FAERS Safety Report 7906236-7 (Version None)
Quarter: 2011Q4

REPORT INFORMATION
  Report Type: 
  Country: None (occurrence: None)
  Receive Date: 20111109
  Receipt Date: 20111108
  Transmission Date: 20120403
  Serious: Yes (Hospitalization)
  Sender: FDA-Public Use
  Company Number: DL2011-0874

PATIENT
  Age: 21 Year
  Sex: Female

DRUGS (2)
  1. MIFEPRISTONE (MIFEPREX) [Suspect]
     Indication: ABORTION INDUCED
     Dosage: 200 MG, ORAL
     Route: 048
     Dates: start: 20110806
  2. MISOPROSTOL [Suspect]
     Dosage: 800 MCG, VAGINAL
     Route: 067
     Dates: start: 20110807

REACTIONS (4)
  - ABORTION INCOMPLETE [None]
  - ANAEMIA [None]
  - MENORRHAGIA [None]
  - MUSCLE SPASMS [None]
